FAERS Safety Report 10657521 (Version 1)
Quarter: 2014Q4

REPORT INFORMATION
  Report Type: Spontaneous
  Country: NO (occurrence: None)
  Receive Date: 20141215
  Receipt Date: 20141215
  Transmission Date: 20150529
  Serious: Yes (Other)
  Sender: FDA-Public Use
  Company Number: NO2014003588

PATIENT
  Age: 31 Year
  Sex: Female
  Weight: 70 kg

DRUGS (1)
  1. SEROXAT (PAROXETINE HYDROCHLORIDE) TABLET [Suspect]
     Active Substance: PAROXETINE HYDROCHLORIDE
     Indication: DEPRESSION
     Dates: start: 20121017, end: 20140528

REACTIONS (25)
  - Increased appetite [None]
  - Hypersomnia [None]
  - Panic attack [None]
  - Crying [None]
  - Hyperhidrosis [None]
  - Dizziness [None]
  - Disturbance in attention [None]
  - Gingival bleeding [None]
  - Anxiety [None]
  - Vitamin B12 deficiency [None]
  - Yawning [None]
  - Nervousness [None]
  - Bladder disorder [None]
  - Pain in extremity [None]
  - Suicidal ideation [None]
  - Dry mouth [None]
  - Tremor [None]
  - Aggression [None]
  - Food craving [None]
  - Indifference [None]
  - Abnormal dreams [None]
  - Inappropriate affect [None]
  - Gait disturbance [None]
  - Drug withdrawal syndrome [None]
  - Nausea [None]

NARRATIVE: CASE EVENT DATE: 20121017
